FAERS Safety Report 5233389-4 (Version None)
Quarter: 2007Q1

REPORT INFORMATION
  Report Type: 
  Country: None (occurrence: None)
  Receive Date: 20070206
  Receipt Date: 20070125
  Transmission Date: 20070707
  Serious: Yes (Hospitalization)
  Sender: FDA-Public Use
  Company Number: SP1200700029

PATIENT
  Sex: Male

DRUGS (3)
  1. AMITIZA [Suspect]
     Indication: CONSTIPATION
     Dosage: 24 MCG, BID, ORAL
     Route: 048
     Dates: start: 20070111, end: 20070125
  2. METOPROLOL TARTRATE [Concomitant]
  3. ALBUTEROL /00139501/ (SALBUTAMOL) [Concomitant]

REACTIONS (4)
  - ABASIA [None]
  - DIZZINESS [None]
  - FREQUENT BOWEL MOVEMENTS [None]
  - NAUSEA [None]
